FAERS Safety Report 6431540-1 (Version None)
Quarter: 2009Q4

REPORT INFORMATION
  Report Type: 
  Country: None (occurrence: None)
  Receive Date: 20091106
  Receipt Date: 20091027
  Transmission Date: 20100525
  Serious: Yes (Death, Hospitalization)
  Sender: FDA-Public Use
  Company Number: IR-GENENTECH-292864

PATIENT
  Age: 22 Year
  Sex: Male

DRUGS (1)
  1. MABTHERA [Suspect]
     Indication: WEGENER'S GRANULOMATOSIS
     Dosage: UNK
     Route: 042
     Dates: start: 20090914

REACTIONS (1)
  - PULMONARY ALVEOLAR HAEMORRHAGE [None]
